FAERS Safety Report 18085571 (Version 1)
Quarter: 2020Q3

REPORT INFORMATION
  Report Type: Spontaneous
  Country: US (occurrence: US)
  Receive Date: 20200729
  Receipt Date: 20200729
  Transmission Date: 20201103
  Serious: No
  Sender: FDA-Public Use
  Company Number: US-009507513-2007USA003369

PATIENT
  Sex: Female

DRUGS (7)
  1. PRINIVIL [Suspect]
     Active Substance: LISINOPRIL
     Indication: LABILE BLOOD PRESSURE
     Dosage: UNK, UNKNOWN
     Route: 048
  2. MAGNESIUM (UNSPECIFIED) [Concomitant]
     Active Substance: MAGNESIUM
  3. PRINIVIL [Suspect]
     Active Substance: LISINOPRIL
     Indication: LABILE BLOOD PRESSURE
     Dosage: UNK UNK, UNKNOWN
     Route: 048
  4. FOLIC ACID. [Concomitant]
     Active Substance: FOLIC ACID
  5. METHOTREXATE. [Concomitant]
     Active Substance: METHOTREXATE
  6. FUROSEMIDE. [Concomitant]
     Active Substance: FUROSEMIDE
  7. PRINIVIL [Suspect]
     Active Substance: LISINOPRIL
     Indication: LABILE BLOOD PRESSURE
     Dosage: UNK UNK, UNKNOWN
     Route: 048

REACTIONS (1)
  - Hypersensitivity [Unknown]
